FAERS Safety Report 20166938 (Version 2)
Quarter: 2021Q4

REPORT INFORMATION
  Report Type: Report from Study
  Country: DE (occurrence: DE)
  Receive Date: 20211209
  Receipt Date: 20211214
  Transmission Date: 20220303
  Serious: Yes (Other)
  Sender: FDA-Public Use
  Company Number: DE-PFM-2021-11969

PATIENT
  Sex: Male

DRUGS (2)
  1. BRAFTOVI [Suspect]
     Active Substance: ENCORAFENIB
     Indication: Neoplasm malignant
     Dosage: 3 DF
     Route: 048
  2. MEKTOVI [Suspect]
     Active Substance: BINIMETINIB
     Indication: Neoplasm malignant
     Dosage: 2 DF
     Route: 048

REACTIONS (7)
  - Loss of control of legs [Unknown]
  - Pyrexia [Unknown]
  - Vomiting [Unknown]
  - Arthralgia [Unknown]
  - Asthenia [Unknown]
  - Hepatic enzyme increased [Unknown]
  - Disease recurrence [Unknown]
